FAERS Safety Report 10391961 (Version 2)
Quarter: 2014Q3

REPORT INFORMATION
  Report Type: Spontaneous
  Country: BR (occurrence: BR)
  Receive Date: 20140819
  Receipt Date: 20140828
  Transmission Date: 20150326
  Serious: No
  Sender: FDA-Public Use
  Company Number: PHHY2014BR097115

PATIENT
  Sex: Male

DRUGS (1)
  1. INDACATEROL [Suspect]
     Active Substance: INDACATEROL
     Dosage: UNK
     Dates: start: 20140423, end: 20140714

REACTIONS (4)
  - Polydipsia [Recovered/Resolved]
  - Weight decreased [Recovered/Resolved]
  - Polyuria [Recovered/Resolved]
  - Pollakiuria [Recovered/Resolved]
